FAERS Safety Report 13104973 (Version 1)
Quarter: 2017Q1

REPORT INFORMATION
  Report Type: Spontaneous
  Country: US (occurrence: US)
  Receive Date: 20170110
  Receipt Date: 20170110
  Transmission Date: 20170428
  Serious: No
  Sender: FDA-Public Use
  Company Number: None

PATIENT
  Age: 31 Year
  Sex: Male

DRUGS (1)
  1. CYCLOSPORINE CAP 25MG MOD [Suspect]
     Active Substance: CYCLOSPORINE

REACTIONS (1)
  - Alopecia [None]

NARRATIVE: CASE EVENT DATE: 20170110
